FAERS Safety Report 6277669-2 (Version None)
Quarter: 2009Q3

REPORT INFORMATION
  Report Type: 
  Country: None (occurrence: None)
  Receive Date: 20090722
  Receipt Date: 20090710
  Transmission Date: 20100115
  Serious: Yes (Hospitalization, Other)
  Sender: FDA-Public Use
  Company Number: US-ELI_LILLY_AND_COMPANY-US200601003488

PATIENT
  Sex: Male
  Weight: 86.167 kg

DRUGS (4)
  1. ZYPREXA [Suspect]
     Indication: SCHIZOPHRENIA
     Dosage: 30 MG, UNK
     Dates: start: 20020101, end: 20050426
  2. RISPERDAL [Concomitant]
     Dosage: 2 MG, EACH EVENING
  3. DEPAKOTE [Concomitant]
     Dosage: 500 MG, 2/D
  4. REMERON [Concomitant]
     Dosage: 15 MG, EACH EVENING

REACTIONS (10)
  - ALANINE AMINOTRANSFERASE INCREASED [None]
  - ASPARTATE AMINOTRANSFERASE INCREASED [None]
  - DIABETES MELLITUS [None]
  - EOSINOPHIL COUNT INCREASED [None]
  - HYPERGLYCAEMIA [None]
  - LYMPHOCYTE COUNT INCREASED [None]
  - MONOCYTE COUNT INCREASED [None]
  - NEUTROPHIL COUNT DECREASED [None]
  - OVERDOSE [None]
  - RED BLOOD CELL COUNT DECREASED [None]
